FAERS Safety Report 10234306 (Version 1)
Quarter: 2014Q2

REPORT INFORMATION
  Report Type: Spontaneous
  Country: PH (occurrence: PH)
  Receive Date: 20140612
  Receipt Date: 20140612
  Transmission Date: 20141212
  Serious: Yes (Hospitalization, Other)
  Sender: FDA-Public Use
  Company Number: PH-009507513-1406PHL005025

PATIENT
  Age: 71 Year
  Sex: Male

DRUGS (2)
  1. JANUVIA [Suspect]
     Indication: DIABETES MELLITUS
     Dosage: 100 MG, BID
     Route: 048
  2. JANUVIA [Suspect]
     Dosage: UNK

REACTIONS (7)
  - Wrist surgery [Unknown]
  - Arthropathy [Unknown]
  - Lung neoplasm [Unknown]
  - Lung operation [Unknown]
  - Lung infection [Unknown]
  - Inappropriate schedule of drug administration [Unknown]
  - Overdose [Unknown]
